FAERS Safety Report 7192759-8 (Version None)
Quarter: 2010Q4

REPORT INFORMATION
  Report Type: 
  Country: None (occurrence: None)
  Receive Date: 20101223
  Receipt Date: 20101214
  Transmission Date: 20110411
  Serious: Yes (Disabling)
  Sender: FDA-Public Use
  Company Number: GB-TEVA-260460ISR

PATIENT
  Age: 48 Year
  Sex: Male
  Weight: 95.45 kg

DRUGS (1)
  1. DOXYCYCLINE [Suspect]
     Dates: start: 20101201

REACTIONS (3)
  - DEPERSONALISATION [None]
  - DEREALISATION [None]
  - DYSARTHRIA [None]
